FAERS Safety Report 7208974-0 (Version None)
Quarter: 2011Q1

REPORT INFORMATION
  Report Type: 
  Country: None (occurrence: None)
  Receive Date: 20110104
  Receipt Date: 20101221
  Transmission Date: 20110831
  Serious: Yes (Death, Hospitalization, Disabling)
  Sender: FDA-Public Use
  Company Number: JP-CELGENEUS-087-21880-10090429

PATIENT
  Sex: Female
  Weight: 43.3 kg

DRUGS (17)
  1. LASIX [Concomitant]
     Route: 048
     Dates: start: 20100827, end: 20100911
  2. LENADEX [Suspect]
     Route: 048
     Dates: start: 20100827, end: 20100901
  3. GASTER [Concomitant]
     Route: 048
     Dates: start: 20100827, end: 20100911
  4. METHYCOBAL [Concomitant]
     Route: 048
     Dates: start: 20100827, end: 20100911
  5. LASIX [Concomitant]
     Indication: MULTIPLE MYELOMA
     Route: 048
     Dates: end: 20100827
  6. REVLIMID [Suspect]
     Indication: MULTIPLE MYELOMA
     Route: 048
     Dates: start: 20100730, end: 20100820
  7. REVLIMID [Suspect]
     Route: 048
     Dates: start: 20100827, end: 20100901
  8. LENADEX [Suspect]
     Indication: MULTIPLE MYELOMA
     Route: 048
     Dates: start: 20100730, end: 20100819
  9. METHYCOBAL [Concomitant]
     Route: 048
     Dates: end: 20100827
  10. LENADEX [Suspect]
     Route: 048
     Dates: start: 20100820, end: 20100820
  11. GASTER [Concomitant]
     Indication: PROPHYLAXIS
     Route: 048
     Dates: end: 20100827
  12. BAKTAR [Concomitant]
     Indication: PROPHYLAXIS
     Route: 048
     Dates: end: 20100827
  13. MAGMITT [Concomitant]
     Indication: PROPHYLAXIS
     Route: 048
     Dates: end: 20100827
  14. ZYLORIC [Concomitant]
     Indication: PROPHYLAXIS
     Route: 048
     Dates: end: 20100827
  15. ZYLORIC [Concomitant]
     Route: 048
     Dates: start: 20100827, end: 20100911
  16. BAKTAR [Concomitant]
     Route: 048
     Dates: start: 20100827, end: 20100911
  17. MAGMITT [Concomitant]
     Route: 048
     Dates: start: 20100827, end: 20100911

REACTIONS (4)
  - SPINAL COMPRESSION FRACTURE [None]
  - RENAL FAILURE [None]
  - MULTIPLE MYELOMA [None]
  - CYTOMEGALOVIRUS INFECTION [None]
